FAERS Safety Report 7763100-4 (Version None)
Quarter: 2011Q3

REPORT INFORMATION
  Report Type: 
  Country: None (occurrence: None)
  Receive Date: 20110920
  Receipt Date: 20110914
  Transmission Date: 20111222
  Serious: Yes (Hospitalization)
  Sender: FDA-Public Use
  Company Number: US-SANOFI-AVENTIS-2011SA060471

PATIENT
  Age: 56 Year
  Sex: Male

DRUGS (6)
  1. JANUVIA [Concomitant]
  2. SOLOSTAR [Suspect]
     Indication: TYPE 2 DIABETES MELLITUS
  3. METFORMIN HCL [Concomitant]
  4. HUMIRA [Concomitant]
  5. LANTUS [Suspect]
     Indication: TYPE 2 DIABETES MELLITUS
     Dosage: DOSE:55 UNIT(S)
     Route: 058
  6. NOVOLOG [Concomitant]

REACTIONS (8)
  - GENITAL INFECTION MALE [None]
  - HYPERHIDROSIS [None]
  - INFECTION [None]
  - BLOOD GLUCOSE INCREASED [None]
  - FATIGUE [None]
  - HYPERTENSION [None]
  - HYPERGLYCAEMIA [None]
  - MUSCULAR WEAKNESS [None]
